FAERS Safety Report 18709397 (Version 1)
Quarter: 2021Q1

REPORT INFORMATION
  Report Type: Spontaneous
  Country: US (occurrence: US)
  Receive Date: 20210106
  Receipt Date: 20210106
  Transmission Date: 20210419
  Serious: No
  Sender: FDA-Public Use
  Company Number: US-GILEAD-2021-0511606

PATIENT
  Age: 62 Year
  Sex: Female

DRUGS (12)
  1. SOFOSBUVIR;VELPATASVIR [Suspect]
     Active Substance: SOFOSBUVIR\VELPATASVIR
     Indication: CHRONIC HEPATITIS C
     Dosage: 1 DOSAGE FORM, QD
     Route: 048
     Dates: start: 20201214
  2. SPIRONOLACTONE. [Concomitant]
     Active Substance: SPIRONOLACTONE
  3. FUROSEMIDE. [Concomitant]
     Active Substance: FUROSEMIDE
  4. FOLIC ACID. [Concomitant]
     Active Substance: FOLIC ACID
  5. VITAMIN B12 [Concomitant]
     Active Substance: CYANOCOBALAMIN
  6. PREDNISONE. [Concomitant]
     Active Substance: PREDNISONE
  7. POTASSIUM [Concomitant]
     Active Substance: POTASSIUM
  8. PROTONIX [OMEPRAZOLE] [Concomitant]
     Active Substance: OMEPRAZOLE
  9. AMLODIPINE BESILATE [Concomitant]
     Active Substance: AMLODIPINE BESYLATE
  10. NORCO [Concomitant]
     Active Substance: ACETAMINOPHEN\HYDROCODONE BITARTRATE
  11. LACTULOSE. [Concomitant]
     Active Substance: LACTULOSE
  12. PROMETHAZINE [Concomitant]
     Active Substance: PROMETHAZINE HYDROCHLORIDE

REACTIONS (2)
  - Hunger [Not Recovered/Not Resolved]
  - Headache [Recovered/Resolved]

NARRATIVE: CASE EVENT DATE: 20201230
